FAERS Safety Report 4736440-0 (Version None)
Quarter: 2005Q3

REPORT INFORMATION
  Report Type: 
  Country: None (occurrence: None)
  Receive Date: 20050808
  Receipt Date: 20050727
  Transmission Date: 20060218
  Serious: Yes (Hospitalization)
  Sender: FDA-Public Use
  Company Number: GB-BRISTOL-MYERS SQUIBB COMPANY-13059027

PATIENT
  Sex: Male

DRUGS (3)
  1. ERBITUX [Suspect]
     Indication: RECTAL CANCER
     Route: 042
  2. AVASTIN [Suspect]
     Indication: RECTAL CANCER
     Route: 042
  3. IRINOTECAN [Suspect]
     Indication: RECTAL CANCER

REACTIONS (1)
  - DEEP VEIN THROMBOSIS [None]
